FAERS Safety Report 10151947 (Version 2)
Quarter: 2014Q3

REPORT INFORMATION
  Report Type: Spontaneous
  Country: IT (occurrence: IT)
  Receive Date: 20140505
  Receipt Date: 20140801
  Transmission Date: 20150326
  Serious: Yes (Other)
  Sender: FDA-Public Use
  Company Number: IT-JNJFOC-20140420590

PATIENT
  Age: 43 Year
  Sex: Female

DRUGS (2)
  1. DELTACORTENE [Concomitant]
     Active Substance: PREDNISONE
     Indication: CERVICOBRACHIAL SYNDROME
     Route: 065
  2. PALEXIA [Suspect]
     Active Substance: TAPENTADOL HYDROCHLORIDE
     Indication: CERVICOBRACHIAL SYNDROME
     Route: 048
     Dates: start: 20130701, end: 20130725

REACTIONS (4)
  - Headache [Recovering/Resolving]
  - Nausea [Recovering/Resolving]
  - Vomiting [Recovering/Resolving]
  - Speech disorder [Recovering/Resolving]

NARRATIVE: CASE EVENT DATE: 201307
